FAERS Safety Report 10629664 (Version 1)
Quarter: 2014Q4

REPORT INFORMATION
  Report Type: Spontaneous
  Country: US (occurrence: US)
  Receive Date: 20141205
  Receipt Date: 20141205
  Transmission Date: 20150529
  Serious: No
  Sender: FDA-Public Use
  Company Number: US-BRISTOL-MYERS SQUIBB COMPANY-21572185

PATIENT
  Age: 45 Year
  Sex: Female

DRUGS (1)
  1. ABILIFY [Suspect]
     Active Substance: ARIPIPRAZOLE
     Indication: POST-TRAUMATIC STRESS DISORDER
     Dosage: INCREASED TO 20MG?DECREASED TO 15MG
     Dates: start: 2013

REACTIONS (5)
  - Vomiting [Unknown]
  - Constipation [Unknown]
  - Nightmare [Unknown]
  - Nausea [Unknown]
  - Weight increased [Unknown]
